FAERS Safety Report 14568030 (Version 2)
Quarter: 2018Q2

REPORT INFORMATION
  Report Type: Report from Study
  Country: ES (occurrence: ES)
  Receive Date: 20180223
  Receipt Date: 20180417
  Transmission Date: 20180711
  Serious: Yes (Death, Other)
  Sender: FDA-Public Use
  Company Number: ES-BRISTOL-MYERS SQUIBB COMPANY-BMS-2018-016633

PATIENT
  Age: 59 Year
  Sex: Male
  Weight: 77 kg

DRUGS (13)
  1. EUTIROX [Concomitant]
     Active Substance: LEVOTHYROXINE SODIUM
     Indication: HYPOTHYROIDISM
     Dosage: 75 ?G, UNK
     Route: 048
     Dates: start: 20170920
  2. PREGABALINA [Concomitant]
     Active Substance: PREGABALIN
     Indication: RADICULOPATHY
     Dosage: 75 MG, Q8H
     Route: 048
     Dates: start: 20180122
  3. VALSARTAN + HIDROCLOROTIAZIDA [Concomitant]
     Active Substance: HYDROCHLOROTHIAZIDE\VALSARTAN
     Indication: HYPERTENSION
     Dosage: 160 MG, QD
     Route: 048
     Dates: start: 20180110
  4. NIVOLUMAB [Suspect]
     Active Substance: NIVOLUMAB
     Indication: LUNG NEOPLASM MALIGNANT
     Dosage: 228 MG, Q2WK
     Route: 065
     Dates: start: 20180208, end: 20180208
  5. NIVOLUMAB [Suspect]
     Active Substance: NIVOLUMAB
     Indication: MALIGNANT MELANOMA
     Route: 065
  6. LORMETAZEPAM [Concomitant]
     Active Substance: LORMETAZEPAM
     Indication: DEPRESSION
     Dosage: 2 MG, QD
     Route: 048
     Dates: start: 20171127
  7. IPILIMUMAB [Suspect]
     Active Substance: IPILIMUMAB
     Indication: MALIGNANT MELANOMA
     Dosage: UNK
     Route: 065
  8. EUTIROX [Concomitant]
     Active Substance: LEVOTHYROXINE SODIUM
     Indication: PRODUCT USED FOR UNKNOWN INDICATION
     Dosage: 50 UNK, UNK
     Route: 048
     Dates: start: 20160805
  9. TARGIN [Concomitant]
     Active Substance: NALOXONE HYDROCHLORIDE\OXYCODONE HYDROCHLORIDE
     Indication: TUMOUR PAIN
     Dosage: 10 MG, QD
     Route: 048
     Dates: start: 20180110
  10. CLOPIDOGREL [Concomitant]
     Active Substance: CLOPIDOGREL BISULFATE
     Indication: PRODUCT USED FOR UNKNOWN INDICATION
     Dosage: 75 MG, QD
     Route: 048
     Dates: start: 20170920
  11. FENTANILO                          /00174601/ [Concomitant]
     Active Substance: FENTANYL
     Indication: TUMOUR PAIN
     Dosage: 1 DF, UNK
     Route: 060
     Dates: start: 20180110
  12. IPILIMUMAB [Suspect]
     Active Substance: IPILIMUMAB
     Indication: LUNG NEOPLASM MALIGNANT
     Route: 065
  13. ESCITALOPRAM [Concomitant]
     Active Substance: ESCITALOPRAM OXALATE
     Indication: DEPRESSION
     Dosage: 10 MG, QD
     Route: 048
     Dates: start: 20180125

REACTIONS (2)
  - Stomatitis [Recovering/Resolving]
  - Death [Fatal]

NARRATIVE: CASE EVENT DATE: 20180215
